APPROVED DRUG PRODUCT: FOLIC ACID
Active Ingredient: FOLIC ACID
Strength: 1MG
Dosage Form/Route: TABLET;ORAL
Application: A090035 | Product #001 | TE Code: AA
Applicant: CHARTWELL MOLECULAR HOLDINGS LLC
Approved: Jun 9, 2009 | RLD: No | RS: No | Type: RX